FAERS Safety Report 4921163-5 (Version None)
Quarter: 2006Q1

REPORT INFORMATION
  Report Type: 
  Country: None (occurrence: None)
  Receive Date: 20060217
  Receipt Date: 20060210
  Transmission Date: 20060701
  Serious: Yes (Other)
  Sender: FDA-Public Use
  Company Number: 222038

PATIENT
  Age: 53 Year
  Sex: Male

DRUGS (11)
  1. RITUXAN(RITUXIMAB) CONC FOR SOLUTION FOR INFUSION [Suspect]
     Indication: LYMPHOMA
     Dosage: 690 MG, INTRAVENOUS
     Route: 042
     Dates: start: 20050111
  2. CYCLOPHOSPHAMIDE [Suspect]
     Indication: LYMPHOMA
     Dosage: 1390 MG, INTRAVENOUS
     Route: 042
     Dates: start: 20050111
  3. DOXORUBICIN HCL [Suspect]
     Indication: LYMPHOMA
     Dosage: 92 MG, INTRAVENOUS
     Route: 042
     Dates: start: 20050111
  4. VINCRISTINE [Suspect]
     Indication: LYMPHOMA
     Dosage: 2 MG, INTRAVENOUS
     Route: 042
     Dates: start: 20050111
  5. IBUPROFEN [Concomitant]
  6. CHLORPHENIRAMINE MALEATE [Concomitant]
  7. FAMOTIDINE [Concomitant]
  8. IRSOGLADINE MALEATE (IRSOGLADINE MALEATE) [Concomitant]
  9. FLUCONAZOLE [Concomitant]
  10. ALLOPURINOL [Concomitant]
  11. MAGNESIUM OXIDE (MAGNESIUM OXIDE) [Concomitant]

REACTIONS (1)
  - NEUTROPENIA [None]
